FAERS Safety Report 25764027 (Version 1)
Quarter: 2025Q3

REPORT INFORMATION
  Report Type: Spontaneous
  Country: EU (occurrence: EU)
  Receive Date: 20250905
  Receipt Date: 20250905
  Transmission Date: 20251021
  Serious: Yes (Life-Threatening, Hospitalization, Other)
  Sender: SUNOVION
  Company Number: EU-PFM-2025-04155

PATIENT
  Age: 70 Year
  Sex: Male

DRUGS (1)
  1. VIBEGRON [Suspect]
     Active Substance: VIBEGRON
     Indication: Hypertonic bladder

REACTIONS (6)
  - Presyncope [Recovering/Resolving]
  - Retching [Recovering/Resolving]
  - Sinoatrial block [Recovering/Resolving]
  - Atrioventricular block [Recovering/Resolving]
  - Bradycardia [Recovering/Resolving]
  - Nausea [Recovering/Resolving]

NARRATIVE: CASE EVENT DATE: 20250824
